FAERS Safety Report 8789865 (Version 3)
Quarter: 2012Q4

REPORT INFORMATION
  Report Type: 
  Country: US (occurrence: US)
  Receive Date: 20120917
  Receipt Date: 20121104
  Transmission Date: 20130627
  Serious: Yes (Other)
  Sender: FDA-Public Use
  Company Number: US-JNJFOC-20120904127

PATIENT
  Age: 38 None
  Sex: Male
  Weight: 115.31 kg

DRUGS (7)
  1. INVEGA SUSTENNA [Suspect]
     Indication: BORDERLINE PERSONALITY DISORDER
     Route: 030
     Dates: start: 20101130, end: 20120907
  2. INVEGA SUSTENNA [Suspect]
     Indication: POST-TRAUMATIC STRESS DISORDER
     Route: 030
     Dates: start: 20101130, end: 20120907
  3. INVEGA SUSTENNA [Suspect]
     Indication: DISSOCIATIVE DISORDER
     Route: 030
     Dates: start: 20101130, end: 20120907
  4. INVEGA SUSTENNA [Suspect]
     Indication: SCHIZOAFFECTIVE DISORDER
     Route: 030
     Dates: start: 20101130, end: 20120907
  5. LORAZEPAM [Concomitant]
     Indication: PRODUCT USED FOR UNKNOWN INDICATION
     Route: 065
  6. FLUOXETINE [Concomitant]
     Indication: PRODUCT USED FOR UNKNOWN INDICATION
     Route: 065
  7. PROPRANOLOL [Concomitant]
     Indication: PRODUCT USED FOR UNKNOWN INDICATION
     Route: 065

REACTIONS (2)
  - Leukocytoclastic vasculitis [Recovered/Resolved]
  - Tachycardia [Not Recovered/Not Resolved]
